FAERS Safety Report 21996000 (Version 8)
Quarter: 2024Q1

REPORT INFORMATION
  Report Type: Report from Study
  Country: JP (occurrence: JP)
  Receive Date: 20230215
  Receipt Date: 20240321
  Transmission Date: 20240409
  Serious: Yes (Hospitalization, Other)
  Sender: FDA-Public Use
  Company Number: JP-TAKEDA-2023TJP001890

PATIENT
  Age: 70 Year
  Sex: Male
  Weight: 74 kg

DRUGS (12)
  1. LEUPROLIDE ACETATE [Suspect]
     Active Substance: ISOPROPYL ALCOHOL\LEUPROLIDE ACETATE
     Indication: Bulbospinal muscular atrophy congenital
     Dosage: 11.25 MILLIGRAM, Q3MONTHS
     Route: 058
     Dates: start: 20180111
  2. METHYLCOBALAMIN [Concomitant]
     Active Substance: METHYLCOBALAMIN
     Indication: Bulbospinal muscular atrophy congenital
     Dosage: 1500 MICROGRAM
     Route: 065
     Dates: end: 20200903
  3. GASTER [Concomitant]
     Active Substance: FAMOTIDINE
     Indication: Bulbospinal muscular atrophy congenital
     Dosage: 40 MILLIGRAM
     Route: 065
  4. AMLODIPINE\TELMISARTAN [Concomitant]
     Active Substance: AMLODIPINE\TELMISARTAN
     Indication: Hypertension
     Dosage: 1 DOSAGE FORM
     Route: 065
  5. VEKLURY [Concomitant]
     Active Substance: REMDESIVIR
     Indication: Product used for unknown indication
     Route: 065
     Dates: start: 20221113, end: 20221117
  6. METGLUCO [Concomitant]
     Active Substance: METFORMIN HYDROCHLORIDE
     Indication: Diabetes mellitus
     Dosage: 500 MILLIGRAM
     Route: 065
  7. ACETAMINOPHEN [Concomitant]
     Active Substance: ACETAMINOPHEN
     Indication: Pyrexia
     Route: 065
     Dates: start: 20221113, end: 20221121
  8. AMPICILLIN SODIUM\SULBACTAM SODIUM [Concomitant]
     Active Substance: AMPICILLIN SODIUM\SULBACTAM SODIUM
     Indication: Pneumonia aspiration
     Dosage: 1.5 GRAM, BID
     Route: 065
     Dates: start: 20220920, end: 20220924
  9. DORIPENEM MONOHYDRATE [Concomitant]
     Active Substance: DORIPENEM MONOHYDRATE
     Indication: Product used for unknown indication
     Route: 065
     Dates: start: 20220925, end: 20220927
  10. FAMOTIDINE [Concomitant]
     Active Substance: FAMOTIDINE
     Indication: Prophylaxis against gastrointestinal ulcer
     Dosage: 40 MILLIGRAM
     Route: 065
     Dates: start: 20230113
  11. PIPERACILLIN SODIUM\TAZOBACTAM SODIUM [Concomitant]
     Active Substance: PIPERACILLIN SODIUM\TAZOBACTAM SODIUM
     Indication: Diarrhoea
     Dosage: TIME INTERVAL: 0.33333333 DAYS: 4.5 GRAM, TID
     Route: 065
     Dates: start: 20220927, end: 20220928
  12. PIPERACILLIN SODIUM\TAZOBACTAM SODIUM [Concomitant]
     Active Substance: PIPERACILLIN SODIUM\TAZOBACTAM SODIUM
     Indication: Diarrhoea
     Dosage: TIME INTERVAL: 0.33333333 DAYS: 4.5 GRAM, TID
     Route: 065
     Dates: start: 20221105, end: 20221110

REACTIONS (10)
  - COVID-19 [Recovered/Resolved]
  - Lipid metabolism disorder [Recovering/Resolving]
  - Dysuria [Recovered/Resolved]
  - Arthralgia [Recovered/Resolved]
  - Hypertension [Unknown]
  - Constipation [Recovering/Resolving]
  - Diabetes mellitus [Unknown]
  - Pneumonia aspiration [Recovered/Resolved]
  - Diarrhoea [Recovering/Resolving]
  - Prophylaxis against gastrointestinal ulcer [Unknown]

NARRATIVE: CASE EVENT DATE: 20181220
